FAERS Safety Report 9799991 (Version 1)
Quarter: 2014Q1

REPORT INFORMATION
  Report Type: Spontaneous
  Country: US (occurrence: US)
  Receive Date: 20140106
  Receipt Date: 20140106
  Transmission Date: 20141002
  Serious: No
  Sender: FDA-Public Use
  Company Number: US-GILEAD-2010-0030492

PATIENT
  Age: 70 Year
  Sex: Female
  Weight: 83.01 kg

DRUGS (11)
  1. LETAIRIS [Suspect]
     Indication: PULMONARY ARTERIAL HYPERTENSION
     Route: 048
     Dates: start: 20100628
  2. FOLIC ACID [Concomitant]
  3. EVISTA [Concomitant]
  4. CALTRATE WITH D [Concomitant]
  5. SINGULAR [Concomitant]
  6. TYLENOL [Concomitant]
  7. ALBUTEROL [Concomitant]
  8. CADUET [Concomitant]
  9. ATACAND [Concomitant]
  10. NEXIUM [Concomitant]
  11. VANOS [Concomitant]

REACTIONS (1)
  - Paraesthesia [Unknown]
